FAERS Safety Report 20176877 (Version 1)
Quarter: 2021Q4

REPORT INFORMATION
  Report Type: Spontaneous
  Country: CN (occurrence: CN)
  Receive Date: 20211213
  Receipt Date: 20211213
  Transmission Date: 20220304
  Serious: Yes (Hospitalization)
  Sender: FDA-Public Use
  Company Number: CN-FERRINGPH-2021FE07706

PATIENT
  Age: 28 Year
  Sex: Female

DRUGS (1)
  1. DINOPROSTONE [Suspect]
     Active Substance: DINOPROSTONE
     Indication: Induction of cervix ripening
     Dosage: 10 MG, ONCE/SINGLE
     Route: 067
     Dates: start: 20211121, end: 20211121

REACTIONS (2)
  - Amniotic cavity infection [Recovered/Resolved]
  - Uterine tachysystole [Recovered/Resolved]

NARRATIVE: CASE EVENT DATE: 20211121
